FAERS Safety Report 7585577-X (Version None)
Quarter: 2011Q2

REPORT INFORMATION
  Report Type: 
  Country: None (occurrence: None)
  Receive Date: 20110624
  Receipt Date: 20110609
  Transmission Date: 20111010
  Serious: Yes (Hospitalization)
  Sender: FDA-Public Use
  Company Number: 2011MA006986

PATIENT
  Age: 28 Year
  Sex: Male

DRUGS (2)
  1. PHENYTOIN [Suspect]
     Indication: CONVULSION
     Dosage: 300 MG; QD;
  2. LEVETIRACETAM [Concomitant]

REACTIONS (11)
  - CYANOSIS [None]
  - INCONTINENCE [None]
  - SINUS RHYTHM [None]
  - VOMITING [None]
  - GRAND MAL CONVULSION [None]
  - ANTICONVULSANT DRUG LEVEL ABOVE THERAPEUTIC [None]
  - PNEUMONIA ASPIRATION [None]
  - AGITATION [None]
  - LOSS OF CONSCIOUSNESS [None]
  - RESPIRATORY ACIDOSIS [None]
  - STATUS EPILEPTICUS [None]
